FAERS Safety Report 17053096 (Version 8)
Quarter: 2022Q4

REPORT INFORMATION
  Report Type: Spontaneous
  Country: US (occurrence: US)
  Receive Date: 20191120
  Receipt Date: 20221003
  Transmission Date: 20230113
  Serious: No
  Sender: FDA-Public Use
  Company Number: US-PFIZER INC-2019495947

PATIENT
  Age: 73 Year
  Sex: Female

DRUGS (2)
  1. XELJANZ XR [Suspect]
     Active Substance: TOFACITINIB CITRATE
     Indication: Rheumatoid arthritis
     Dosage: 11 MG, 1X/DAY
     Dates: start: 201801
  2. PREDNISONE [Concomitant]
     Active Substance: PREDNISONE
     Dosage: 10 MG, ALTERNATE DAY[10MG EVERY OTHER DAY]

REACTIONS (8)
  - Pain [Not Recovered/Not Resolved]
  - Sensitivity to weather change [Recovered/Resolved]
  - Memory impairment [Recovered/Resolved]
  - Stomatitis [Unknown]
  - Pain in extremity [Unknown]
  - COVID-19 [Unknown]
  - Abdominal discomfort [Unknown]
  - Malaise [Unknown]
